FAERS Safety Report 9280429 (Version 1)
Quarter: 2013Q2

REPORT INFORMATION
  Report Type: Spontaneous
  Country: US (occurrence: None)
  Receive Date: 20130507
  Receipt Date: 20130507
  Transmission Date: 20140414
  Serious: Yes (Life-Threatening, Hospitalization, Other)
  Sender: FDA-Public Use
  Company Number: None

PATIENT
  Age: 32 Year
  Sex: Female
  Weight: 68.04 kg

DRUGS (1)
  1. TRINESSA [Suspect]
     Indication: CONTRACEPTION
     Dates: start: 20050401, end: 20110801

REACTIONS (5)
  - Hepatic adenoma [None]
  - Blood pressure abnormal [None]
  - Malaise [None]
  - Varicose vein [None]
  - Liver disorder [None]
